FAERS Safety Report 5021530-8 (Version None)
Quarter: 2006Q2

REPORT INFORMATION
  Report Type: 
  Country: None (occurrence: None)
  Receive Date: 20060608
  Receipt Date: 20060119
  Transmission Date: 20061013
  Serious: Yes (Life-Threatening)
  Sender: FDA-Public Use
  Company Number: JP-BOEHRINGER INGELHEIM PHARMACEUTICALS, INC.-2006-BP-00693NB

PATIENT
  Sex: Female

DRUGS (7)
  1. MOBIC [Suspect]
     Indication: RHEUMATOID ARTHRITIS
     Route: 048
     Dates: start: 20040910
  2. EVISTA [Suspect]
     Indication: OSTEOPOROSIS
     Route: 048
     Dates: start: 20060104
  3. RIMATIL [Concomitant]
     Indication: RHEUMATOID ARTHRITIS
     Route: 048
     Dates: start: 20020719
  4. DIOVAN [Concomitant]
     Indication: HYPERTENSION
     Route: 048
     Dates: start: 20040712
  5. MUCOSTA [Concomitant]
     Route: 048
     Dates: start: 20040712
  6. PREDNISOLONE [Concomitant]
     Indication: RHEUMATOID ARTHRITIS
     Route: 048
     Dates: start: 20020719
  7. JIN-SIHO-TO [Concomitant]
     Indication: BRONCHITIS
     Route: 048
     Dates: start: 20051220

REACTIONS (2)
  - DYSPNOEA [None]
  - PLEURAL EFFUSION [None]
